FAERS Safety Report 24295714 (Version 2)
Quarter: 2024Q3

REPORT INFORMATION
  Report Type: Report from Study
  Country: US (occurrence: US)
  Receive Date: 20240908
  Receipt Date: 20240912
  Transmission Date: 20241017
  Serious: Yes (Hospitalization, Other)
  Sender: ABBVIE
  Company Number: US-ABBVIE-5898721

PATIENT
  Sex: Female
  Weight: 63.956 kg

DRUGS (3)
  1. SKYRIZI [Suspect]
     Active Substance: RISANKIZUMAB-RZAA
     Indication: Psoriasis
     Dosage: FORM STRENGTH: 150 MG
     Route: 058
     Dates: start: 202407, end: 202407
  2. SKYRIZI [Suspect]
     Active Substance: RISANKIZUMAB-RZAA
     Dosage: FORM STRENGTH: 150 MG
     Route: 058
     Dates: start: 2021, end: 2022
  3. SKYRIZI [Suspect]
     Active Substance: RISANKIZUMAB-RZAA
     Dosage: END DATE: JUL 2024
     Route: 058
     Dates: start: 20240715

REACTIONS (8)
  - Abdominal pain upper [Not Recovered/Not Resolved]
  - Vomiting [Not Recovered/Not Resolved]
  - Illness [Recovering/Resolving]
  - Fatigue [Unknown]
  - Bacterial infection [Recovering/Resolving]
  - Abdominal distension [Not Recovered/Not Resolved]
  - Hepatitis alcoholic [Not Recovered/Not Resolved]
  - Alcohol rehabilitation [Unknown]

NARRATIVE: CASE EVENT DATE: 20230101
